FAERS Safety Report 12396092 (Version 3)
Quarter: 2016Q2

REPORT INFORMATION
  Report Type: Spontaneous
  Country: IT (occurrence: IT)
  Receive Date: 20160524
  Receipt Date: 20160623
  Transmission Date: 20160815
  Serious: Yes (Other)
  Sender: FDA-Public Use
  Company Number: IT-ROCHE-1762492

PATIENT
  Age: 65 Year
  Sex: Male
  Weight: 92 kg

DRUGS (3)
  1. XELODA [Suspect]
     Active Substance: CAPECITABINE
     Indication: COLON CANCER
     Dosage: 120 X 500 MG FILM-COATED TABLETS IN BLISTER PACK
     Route: 048
     Dates: start: 20160426
  2. OXALIPLATIN. [Suspect]
     Active Substance: OXALIPLATIN
     Indication: COLON CANCER
     Dosage: 5 GLASS VIALS CONTAINING 200 MG/40
     Route: 042
     Dates: start: 20160426
  3. OXALIPLATIN. [Suspect]
     Active Substance: OXALIPLATIN
     Dosage: 5 GLASS VIALS CONTAINING 200 MG/40
     Route: 042
     Dates: start: 20160426

REACTIONS (5)
  - Joint stiffness [Recovered/Resolved with Sequelae]
  - Paraesthesia oral [Recovered/Resolved with Sequelae]
  - Thrombocytopenia [Recovering/Resolving]
  - Vomiting [Recovered/Resolved with Sequelae]
  - Diarrhoea [Recovered/Resolved with Sequelae]

NARRATIVE: CASE EVENT DATE: 20160503
